FAERS Safety Report 23436879 (Version 3)
Quarter: 2024Q1

REPORT INFORMATION
  Report Type: Spontaneous
  Country: JP (occurrence: JP)
  Receive Date: 20240124
  Receipt Date: 20240329
  Transmission Date: 20240410
  Serious: Yes (Hospitalization)
  Sender: FDA-Public Use
  Company Number: JP-002147023-NVSJ2024JP001176

PATIENT
  Sex: Female

DRUGS (1)
  1. TAFINLAR [Suspect]
     Active Substance: DABRAFENIB MESYLATE
     Indication: Malignant nipple neoplasm
     Dosage: 150 MG
     Route: 048
     Dates: end: 20240118

REACTIONS (5)
  - Haematemesis [Recovered/Resolved]
  - Haematemesis [Unknown]
  - Postoperative wound infection [Unknown]
  - Coronavirus infection [Recovered/Resolved]
  - Off label use [Unknown]

NARRATIVE: CASE EVENT DATE: 20240118
